FAERS Safety Report 8387006-5 (Version None)
Quarter: 2012Q2

REPORT INFORMATION
  Report Type: 
  Country: None (occurrence: None)
  Receive Date: 20120525
  Receipt Date: 20120516
  Transmission Date: 20120825
  Serious: Yes (Other)
  Sender: FDA-Public Use
  Company Number: US-PFIZER INC-2012119758

PATIENT
  Sex: Female
  Weight: 82 kg

DRUGS (4)
  1. LEVOXYL [Suspect]
     Dosage: UNK
     Dates: start: 20120201
  2. LEVOXYL [Suspect]
     Dosage: 88 UG, 1X/DAY
     Route: 048
     Dates: start: 20050101, end: 20120101
  3. LEVOXYL [Suspect]
     Indication: HYPOTHYROIDISM
     Dosage: 100 UG, 1X/DAY
     Route: 048
     Dates: start: 20050101
  4. GLUCOPHAGE [Concomitant]
     Indication: INSULIN RESISTANCE
     Dosage: UNK

REACTIONS (9)
  - PALPITATIONS [None]
  - AGITATION [None]
  - ANXIETY [None]
  - THYROID DISORDER [None]
  - DYSPHAGIA [None]
  - FEELING ABNORMAL [None]
  - TREMOR [None]
  - EYE DISORDER [None]
  - NERVOUSNESS [None]
